FAERS Safety Report 19168665 (Version 1)
Quarter: 2021Q2

REPORT INFORMATION
  Report Type: Spontaneous
  Country: SI (occurrence: SI)
  Receive Date: 20210422
  Receipt Date: 20210422
  Transmission Date: 20210717
  Serious: Yes (Hospitalization)
  Sender: FDA-Public Use
  Company Number: NVSC2021SI083325

PATIENT
  Age: 69 Year
  Sex: Female

DRUGS (6)
  1. ARYZALERA [Concomitant]
     Active Substance: ARIPIPRAZOLE
     Indication: SCHIZOAFFECTIVE DISORDER
     Dosage: 15 MG, QD
     Route: 048
  2. ALDACTONE [Suspect]
     Active Substance: SPIRONOLACTONE
     Indication: CONGESTIVE CARDIOMYOPATHY
     Dosage: 25 MG,QD
     Route: 048
     Dates: start: 20210310, end: 20210324
  3. EDEMIDE [Suspect]
     Active Substance: FUROSEMIDE\SPIRONOLACTONE
     Indication: CONGESTIVE CARDIOMYOPATHY
     Dosage: 40 MG,QD
     Route: 048
     Dates: start: 20210310, end: 20210324
  4. ENTRESTO [Suspect]
     Active Substance: SACUBITRIL\VALSARTAN
     Indication: CONGESTIVE CARDIOMYOPATHY
     Dosage: 1 DF, BID
     Route: 048
     Dates: start: 20210310, end: 20210324
  5. ZOLRIX [Concomitant]
     Indication: SCHIZOAFFECTIVE DISORDER
     Dosage: 10 MG,QD
     Route: 048
  6. LITIJEV KARBONAT JADRAN [Suspect]
     Active Substance: LITHIUM CARBONATE
     Indication: SCHIZOAFFECTIVE DISORDER
     Dosage: 300 MG
     Route: 048

REACTIONS (1)
  - Toxicity to various agents [Recovering/Resolving]
